FAERS Safety Report 7973934-9 (Version None)
Quarter: 2011Q4

REPORT INFORMATION
  Report Type: 
  Country: None (occurrence: None)
  Receive Date: 20111213
  Receipt Date: 20110929
  Transmission Date: 20120403
  Serious: Yes (Other)
  Sender: FDA-Public Use
  Company Number: US-ROCHE-1020392

PATIENT
  Sex: Male

DRUGS (4)
  1. PEGASYS [Suspect]
     Indication: HEPATITIS C
     Route: 058
     Dates: start: 20110901
  2. RIBAVIRIN [Suspect]
     Indication: HEPATITIS C
     Route: 048
     Dates: start: 20110901
  3. PEGASYS [Suspect]
  4. TELAPREVIR [Suspect]
     Indication: HEPATITIS C
     Dates: start: 20110901

REACTIONS (2)
  - OCULAR ICTERUS [None]
  - ASTHENIA [None]
